FAERS Safety Report 25571765 (Version 1)
Quarter: 2025Q3

REPORT INFORMATION
  Report Type: Spontaneous
  Country: US (occurrence: None)
  Receive Date: 20250716
  Receipt Date: 20250716
  Transmission Date: 20251021
  Serious: No
  Sender: FDA-CTU
  Company Number: None

PATIENT
  Age: 25 Year
  Sex: Female

DRUGS (1)
  1. FLOLAN [Suspect]
     Active Substance: EPOPROSTENOL SODIUM
     Indication: Pulmonary arterial hypertension
     Route: 042
     Dates: start: 20191223

REACTIONS (4)
  - Drug delivery system malfunction [None]
  - Discomfort [None]
  - Catastrophic reaction [None]
  - Infusion related reaction [None]

NARRATIVE: CASE EVENT DATE: 20250710
